FAERS Safety Report 17925693 (Version 1)
Quarter: 2020Q2

REPORT INFORMATION
  Report Type: Not Available
  Country: DE (occurrence: DE)
  Receive Date: 20200622
  Receipt Date: 20200622
  Transmission Date: 20200714
  Serious: Yes (Hospitalization, Other)
  Sender: FDA-Public Use
  Company Number: DE-SYNTHON BV-IN51PV20_54052

PATIENT
  Age: 71 Year
  Sex: Male
  Weight: 92 kg

DRUGS (7)
  1. TARDYFERON [Concomitant]
     Active Substance: FERROUS SULFATE
     Dosage: 160 MILLIGRAM, BID (80 MG, 2-0-2-0)
     Route: 048
  2. TROSPIUM [Concomitant]
     Active Substance: TROSPIUM
     Dosage: 30 MILLIGRAM, QD (0-0-1-0)
     Route: 048
  3. TEBONIN [GINKGO BILOBA EXTRACT] [Suspect]
     Active Substance: GINKGO
     Indication: PRODUCT USED FOR UNKNOWN INDICATION
     Dosage: 120 MILLIGRAM, QD
     Route: 048
  4. SIMVA ARISTO [Concomitant]
     Active Substance: SIMVASTATIN
     Dosage: 20 MILLIGRAM, QD (0-0-1-0)
     Route: 048
  5. COAPROVEL [Suspect]
     Active Substance: HYDROCHLOROTHIAZIDE\IRBESARTAN
     Indication: PRODUCT USED FOR UNKNOWN INDICATION
     Dosage: 1 DOSAGE FORM, QD (12.5/300 MG, 1-0-0-0)
     Route: 048
  6. ALLOPURINOL. [Concomitant]
     Active Substance: ALLOPURINOL
     Dosage: 300 MILLIGRAM (0.5-0-0-0)
     Route: 048
  7. TAMSULOSIN [Suspect]
     Active Substance: TAMSULOSIN
     Indication: PRODUCT USED FOR UNKNOWN INDICATION
     Dosage: 0.4 MILLIGRAM, QD (0.4 MG, 0-0-1-0, KAPSELN)
     Route: 048

REACTIONS (9)
  - Dehydration [Unknown]
  - Labelled drug-drug interaction medication error [Unknown]
  - Syncope [Unknown]
  - Dizziness [Unknown]
  - Product monitoring error [Unknown]
  - Hypotension [Unknown]
  - Tachycardia [Unknown]
  - Orthostatic intolerance [Unknown]
  - Product prescribing error [Not Recovered/Not Resolved]
